FAERS Safety Report 4863481-5 (Version None)
Quarter: 2005Q4

REPORT INFORMATION
  Report Type: 
  Country: None (occurrence: None)
  Receive Date: 20051222
  Receipt Date: 20050224
  Transmission Date: 20060501
  Serious: No
  Sender: FDA-Public Use
  Company Number: US-GLAXOSMITHKLINE-A0547133A

PATIENT
  Age: 73 Year
  Sex: Female

DRUGS (3)
  1. FLONASE [Suspect]
     Route: 045
  2. SYNTHROID [Concomitant]
  3. VITAMINS [Concomitant]

REACTIONS (5)
  - DRUG INEFFECTIVE [None]
  - EPISTAXIS [None]
  - PHARMACEUTICAL PRODUCT COMPLAINT [None]
  - RHINORRHOEA [None]
  - SNEEZING [None]
